FAERS Safety Report 7892617-7 (Version None)
Quarter: 2011Q4

REPORT INFORMATION
  Report Type: 
  Country: None (occurrence: None)
  Receive Date: 20111102
  Receipt Date: 20111005
  Transmission Date: 20120403
  Serious: Yes (Other)
  Sender: FDA-Public Use
  Company Number: GAM-168-10-US

PATIENT
  Age: 69 Year
  Sex: Female

DRUGS (5)
  1. NEXIUM [Concomitant]
  2. TROPOL (METOPROLOL) [Concomitant]
  3. MICARDIS HCT (HYDROCHLOROTHIAZIDE AND TELMISARTAN) [Concomitant]
  4. DIPHENHYDRAMINE HCL [Concomitant]
  5. OCTAGAM 5% IMMUNE GLOBULIN INTRAVENOUS (OCTAPHARMA) [Suspect]
     Indication: CHRONIC INFLAMMATORY DEMYELINATING POLYRADICULONEUROPATHY
     Dosage: 30G-2X1 MONTH, IV
     Route: 042
     Dates: start: 20100715, end: 20100715

REACTIONS (1)
  - BLOOD PRESSURE INCREASED [None]
